FAERS Safety Report 12998200 (Version 1)
Quarter: 2016Q4

REPORT INFORMATION
  Report Type: Spontaneous
  Country: US (occurrence: US)
  Receive Date: 20161202
  Receipt Date: 20161202
  Transmission Date: 20170207
  Serious: Yes (Death, Hospitalization)
  Sender: FDA-Public Use
  Company Number: None

PATIENT
  Age: 81 Year
  Sex: Male
  Weight: 78.9 kg

DRUGS (7)
  1. HEPARIN [Concomitant]
     Active Substance: HEPARIN SODIUM
  2. ONDANSETRON [Concomitant]
     Active Substance: ONDANSETRON
  3. CABAZITAXEL [Concomitant]
     Active Substance: CABAZITAXEL
  4. FAMOTIDINE. [Concomitant]
     Active Substance: FAMOTIDINE
  5. DENOSUMAB [Suspect]
     Active Substance: DENOSUMAB
     Indication: PROSTATE CANCER
     Dates: start: 20160923, end: 20161111
  6. DIPHENHYDRAMINE. [Concomitant]
     Active Substance: DIPHENHYDRAMINE
  7. DEXAMETHASONE. [Concomitant]
     Active Substance: DEXAMETHASONE

REACTIONS (8)
  - Hypocalcaemia [None]
  - Nausea [None]
  - Vomiting [None]
  - Sepsis [None]
  - Multiple organ dysfunction syndrome [None]
  - Diarrhoea [None]
  - Small intestinal obstruction [None]
  - Fatigue [None]

NARRATIVE: CASE EVENT DATE: 20161111
